FAERS Safety Report 9252226 (Version 1)
Quarter: 2013Q2

REPORT INFORMATION
  Report Type: Spontaneous
  Country: ES (occurrence: ES)
  Receive Date: 20130424
  Receipt Date: 20130424
  Transmission Date: 20140414
  Serious: Yes (Other)
  Sender: FDA-Public Use
  Company Number: ES-COVIDIEN/TYCO HEALTHCARE/MALLINCKRODT-T201301754

PATIENT
  Age: 78 Year
  Sex: Female

DRUGS (2)
  1. EXALGO EXTENDED RELEASE [Suspect]
     Indication: ARTHRALGIA
     Dosage: 8 MG, QD
     Route: 048
     Dates: start: 20120218, end: 20120225
  2. IBUPROFEN [Concomitant]
     Indication: ARTHRALGIA
     Dosage: UNK

REACTIONS (3)
  - Asphyxia [Recovered/Resolved]
  - Dyspnoea [Recovered/Resolved]
  - Dysuria [Recovered/Resolved]
